FAERS Safety Report 9754234 (Version 2)
Quarter: 2013Q4

REPORT INFORMATION
  Report Type: Spontaneous
  Country: US (occurrence: US)
  Receive Date: 20131213
  Receipt Date: 20131216
  Transmission Date: 20140711
  Serious: Yes (Other)
  Sender: FDA-Public Use
  Company Number: US-TEVA-407113USA

PATIENT
  Age: 28 Year
  Sex: Female
  Weight: 79 kg

DRUGS (3)
  1. PARAGARD 380A [Suspect]
     Indication: CONTRACEPTION
     Route: 015
     Dates: start: 20130507, end: 20130514
  2. PROZAC [Concomitant]
     Indication: ANXIETY
  3. IMITREX [Concomitant]
     Route: 065

REACTIONS (4)
  - Device dislocation [Unknown]
  - Device expulsion [Unknown]
  - Metrorrhagia [Unknown]
  - Abdominal pain [Unknown]
